FAERS Safety Report 4970124-9 (Version None)
Quarter: 2006Q2

REPORT INFORMATION
  Report Type: 
  Country: None (occurrence: None)
  Receive Date: 20060406
  Receipt Date: 20051102
  Transmission Date: 20061013
  Serious: Yes (Other)
  Sender: FDA-Public Use
  Company Number: 2005101734

PATIENT
  Age: 40 Year
  Sex: Male

DRUGS (1)
  1. BEXTRA [Suspect]
     Indication: JOINT INJURY
     Dates: start: 20030513, end: 20030621

REACTIONS (3)
  - ANAPHYLACTIC REACTION [None]
  - ELECTROCARDIOGRAM ABNORMAL [None]
  - PYREXIA [None]
